FAERS Safety Report 9970033 (Version 1)
Quarter: 2014Q1

REPORT INFORMATION
  Report Type: Spontaneous
  Country: AR (occurrence: AR)
  Receive Date: 20140306
  Receipt Date: 20140306
  Transmission Date: 20141002
  Serious: Yes (Other)
  Sender: FDA-Public Use
  Company Number: 2014SP000359

PATIENT
  Age: 55 Year
  Sex: Male

DRUGS (3)
  1. METHOTREXATE [Suspect]
     Indication: PSORIATIC ARTHROPATHY
     Dates: start: 2011, end: 2012
  2. ENBREL [Suspect]
     Indication: PSORIATIC ARTHROPATHY
     Dates: start: 2011
  3. ONBRIZE [Concomitant]

REACTIONS (4)
  - Uveitis [Recovered/Resolved]
  - Blindness [Recovered/Resolved with Sequelae]
  - Liver disorder [Recovered/Resolved]
  - Overweight [Recovered/Resolved]
